FAERS Safety Report 20728418 (Version 4)
Quarter: 2022Q2

REPORT INFORMATION
  Report Type: Spontaneous
  Country: CN (occurrence: CN)
  Receive Date: 20220420
  Receipt Date: 20220616
  Transmission Date: 20220721
  Serious: Yes (Hospitalization, Other)
  Sender: FDA-Public Use
  Company Number: CN-Accord-261160

PATIENT
  Age: 54 Year
  Sex: Female
  Weight: 69 kg

DRUGS (9)
  1. DOCETAXEL [Suspect]
     Active Substance: DOCETAXEL
     Indication: Breast cancer metastatic
     Route: 041
     Dates: start: 20211022, end: 20211022
  2. TRASTUZUMAB [Suspect]
     Active Substance: TRASTUZUMAB
     Indication: Breast cancer metastatic
     Dosage: STRENGTH: 150MG
     Route: 041
     Dates: start: 20211022, end: 20211022
  3. PYROTINIB [Suspect]
     Active Substance: PYROTINIB
     Indication: Breast cancer metastatic
     Dosage: 400 MILLIGRAM, QD
     Route: 048
     Dates: start: 20211022, end: 20220325
  4. AMLODIPINE\VALSARTAN [Concomitant]
     Active Substance: AMLODIPINE\VALSARTAN
     Indication: Hypertension
     Dosage: 80 MILLIGRAM, QD
     Route: 048
     Dates: start: 20210928
  5. TORSEMIDE [Concomitant]
     Active Substance: TORSEMIDE
     Indication: Diuretic therapy
     Dosage: 10 MILLIGRAM, QD
     Route: 042
     Dates: start: 20220323, end: 20220325
  6. SODIUM CHLORIDE COMPOUND INJECTION [Concomitant]
     Indication: Fluid replacement
     Dosage: 500 MILLILITER, QD
     Route: 041
     Dates: start: 20220323, end: 20220324
  7. POTASSIUM CHLORIDE [Concomitant]
     Active Substance: POTASSIUM CHLORIDE
     Indication: Mineral supplementation
     Dosage: 1 GRAM, QD
     Route: 041
     Dates: start: 20220323, end: 20220323
  8. SODIUM CHLORIDE [Concomitant]
     Active Substance: SODIUM CHLORIDE
     Indication: Fluid replacement
     Dosage: 500 MILLILITER, QD, STRENGTH: 0.9%
     Route: 041
     Dates: start: 20220324, end: 20220324
  9. INDOMETHACIN [Concomitant]
     Active Substance: INDOMETHACIN
     Indication: Pain
     Dosage: 50 MILLIGRAM, SINGLE
     Route: 054
     Dates: start: 20220325, end: 20220325

REACTIONS (4)
  - Chronic kidney disease [Recovered/Resolved]
  - Hypoalbuminaemia [Recovering/Resolving]
  - Hypokalaemia [Unknown]
  - Iron binding capacity total decreased [Unknown]

NARRATIVE: CASE EVENT DATE: 20220322
